FAERS Safety Report 7828637-8 (Version None)
Quarter: 2011Q4

REPORT INFORMATION
  Report Type: 
  Country: None (occurrence: None)
  Receive Date: 20111020
  Receipt Date: 20111017
  Transmission Date: 20120403
  Serious: Yes (Death, Congenital Anomaly, Other)
  Sender: FDA-Public Use
  Company Number: PHHY2011CA91498

PATIENT
  Sex: Male

DRUGS (3)
  1. MULTI-VITAMINS [Concomitant]
     Dosage: UNK UKN, UNK
     Route: 064
  2. METHYLDOPA [Concomitant]
     Dosage: UNK UKN, UNK
     Route: 064
  3. ALLOPURINOL [Suspect]
     Dosage: 300 MG, QD
     Route: 064

REACTIONS (18)
  - CLEFT LIP AND PALATE [None]
  - CONGENITAL CENTRAL NERVOUS SYSTEM ANOMALY [None]
  - DIAPHRAGMATIC HERNIA [None]
  - MICROTIA [None]
  - POSTMATURE BABY [None]
  - RESPIRATORY FAILURE [None]
  - PREAURICULAR CYST [None]
  - CRYPTORCHISM [None]
  - MATERNAL EXPOSURE DURING PREGNANCY [None]
  - HYDROCEPHALUS [None]
  - SKULL MALFORMATION [None]
  - EXTERNAL AUDITORY CANAL ATRESIA [None]
  - HYPERTELORISM OF ORBIT [None]
  - OPTIC ATROPHY [None]
  - COLOBOMA [None]
  - CARDIAC FAILURE [None]
  - MULTIPLE CONGENITAL ABNORMALITIES [None]
  - MICROPHTHALMOS [None]
